FAERS Safety Report 7526979-7 (Version None)
Quarter: 2011Q2

REPORT INFORMATION
  Report Type: 
  Country: None (occurrence: None)
  Receive Date: 20110606
  Receipt Date: 20040518
  Transmission Date: 20111010
  Serious: Yes (Other)
  Sender: FDA-Public Use
  Company Number: PHHO2004CA07197

PATIENT
  Sex: Male

DRUGS (3)
  1. DIOVAN [Suspect]
     Dosage: 80 MG, QD
     Route: 048
     Dates: end: 20040517
  2. SYNTHROID [Concomitant]
  3. MOTRIN [Suspect]
     Dosage: UNK
     Route: 065
     Dates: start: 20040516

REACTIONS (2)
  - RASH GENERALISED [None]
  - PYREXIA [None]
